APPROVED DRUG PRODUCT: SELEGILINE HYDROCHLORIDE
Active Ingredient: SELEGILINE HYDROCHLORIDE
Strength: 5MG
Dosage Form/Route: TABLET;ORAL
Application: A074565 | Product #001
Applicant: CHARTWELL MOLECULES LLC
Approved: Aug 2, 1996 | RLD: No | RS: No | Type: DISCN